FAERS Safety Report 18312133 (Version 1)
Quarter: 2020Q3

REPORT INFORMATION
  Report Type: Spontaneous
  Country: RU (occurrence: RU)
  Receive Date: 20200925
  Receipt Date: 20200925
  Transmission Date: 20201103
  Serious: Yes (Hospitalization)
  Sender: FDA-Public Use
  Company Number: RU-TEVA-2020-RU-1832937

PATIENT
  Age: 62 Year
  Sex: Female

DRUGS (7)
  1. ATORVASTATIN [Suspect]
     Active Substance: ATORVASTATIN
     Indication: ACUTE MYOCARDIAL INFARCTION
     Dosage: 80 MILLIGRAM DAILY; IN EVENING
     Route: 065
  2. CARVEDILOL. [Concomitant]
     Active Substance: CARVEDILOL
     Indication: ACUTE MYOCARDIAL INFARCTION
     Dosage: 12.5 MILLIGRAM DAILY; IN MORNING AND EVENING
     Route: 065
  3. ACETYLSALICYLIC ACID [Concomitant]
     Active Substance: ASPIRIN
     Indication: ACUTE MYOCARDIAL INFARCTION
     Dosage: 100 MILLIGRAM DAILY; IN EVENING
     Route: 065
  4. TICAGRELOR. [Concomitant]
     Active Substance: TICAGRELOR
     Indication: ACUTE MYOCARDIAL INFARCTION
     Dosage: 180 MILLIGRAM DAILY; IN MORNING AND EVENING
     Route: 065
  5. OMEPRAZOLE. [Concomitant]
     Active Substance: OMEPRAZOLE
     Indication: PRODUCT USED FOR UNKNOWN INDICATION
     Dosage: 20 MILLIGRAM DAILY; IN EVENING
     Route: 065
  6. ENALAPRIL [Concomitant]
     Active Substance: ENALAPRIL
     Indication: ACUTE MYOCARDIAL INFARCTION
     Dosage: 2.5 MILLIGRAM DAILY; IN MORNING
     Route: 065
  7. SPIRONOLACTONE. [Concomitant]
     Active Substance: SPIRONOLACTONE
     Indication: ACUTE MYOCARDIAL INFARCTION
     Dosage: 25 MILLIGRAM DAILY; IN MORNING
     Route: 065

REACTIONS (3)
  - Rash [Recovering/Resolving]
  - Diarrhoea [Recovering/Resolving]
  - Hepatotoxicity [Recovering/Resolving]
